FAERS Safety Report 11037112 (Version 1)
Quarter: 2015Q2

REPORT INFORMATION
  Report Type: Spontaneous
  Country: US (occurrence: US)
  Receive Date: 20150416
  Receipt Date: 20150416
  Transmission Date: 20150821
  Serious: No
  Sender: FDA-Public Use
  Company Number: US-BIOGENIDEC-2015BI046383

PATIENT
  Age: 72 Year
  Sex: Female

DRUGS (18)
  1. EXCEDRINE EXTRA STRENGTH [Concomitant]
  2. SINGULAIR [Concomitant]
     Active Substance: MONTELUKAST SODIUM
  3. SKELAXIN [Concomitant]
     Active Substance: METAXALONE
  4. SUDAFED [Concomitant]
     Active Substance: PSEUDOEPHEDRINE HYDROCHLORIDE
  5. LIDOCAINE. [Concomitant]
     Active Substance: LIDOCAINE
  6. BETHANECHOL CHLORIDE. [Concomitant]
     Active Substance: BETHANECHOL CHLORIDE
  7. FENTANYL. [Concomitant]
     Active Substance: FENTANYL
  8. FLONASE [Concomitant]
     Active Substance: FLUTICASONE PROPIONATE
  9. HYDROCODONE BITARTRATE AND ACETAMINOPHEN [Concomitant]
     Active Substance: ACETAMINOPHEN\HYDROCODONE BITARTRATE
  10. CELEBREX [Concomitant]
     Active Substance: CELECOXIB
  11. FLOMAX [Concomitant]
     Active Substance: TAMSULOSIN HYDROCHLORIDE
  12. VITAMIN D3 [Concomitant]
     Active Substance: CHOLECALCIFEROL
  13. ZYRTEC ALLERGY [Concomitant]
  14. TECFIDERA [Suspect]
     Active Substance: DIMETHYL FUMARATE
     Indication: MULTIPLE SCLEROSIS
     Route: 048
     Dates: start: 20140718
  15. CALCIUM [Concomitant]
     Active Substance: CALCIUM
  16. COLACE [Concomitant]
     Active Substance: DOCUSATE SODIUM
  17. PROGESTERONE. [Concomitant]
     Active Substance: PROGESTERONE
  18. THYROID [Concomitant]
     Active Substance: LEVOTHYROXINE\LIOTHYRONINE

REACTIONS (1)
  - Abdominal distension [Unknown]

NARRATIVE: CASE EVENT DATE: 20150301
